FAERS Safety Report 6594222-1 (Version None)
Quarter: 2010Q1

REPORT INFORMATION
  Report Type: 
  Country: None (occurrence: None)
  Receive Date: 20100218
  Receipt Date: 20100218
  Transmission Date: 20100710
  Serious: No
  Sender: FDA-Public Use
  Company Number: None

PATIENT
  Sex: Female
  Weight: 68.0396 kg

DRUGS (1)
  1. TYLENOL-500 [Suspect]
     Indication: HEADACHE
     Dosage: 2 TABLETS 1 TIME 5:30AM
     Dates: start: 20100115

REACTIONS (5)
  - ABDOMINAL PAIN UPPER [None]
  - BURNING SENSATION [None]
  - DIARRHOEA [None]
  - EYE IRRITATION [None]
  - RETCHING [None]
